FAERS Safety Report 9587088 (Version 2)
Quarter: 2013Q4

REPORT INFORMATION
  Report Type: Report from Study
  Country: US (occurrence: US)
  Receive Date: 20131003
  Receipt Date: 20131022
  Transmission Date: 20140711
  Serious: Yes (Hospitalization)
  Sender: FDA-Public Use
  Company Number: US-JNJFOC-20130915867

PATIENT
  Sex: Female
  Weight: 104.33 kg

DRUGS (3)
  1. REMICADE [Suspect]
     Indication: PSORIASIS
     Route: 042
  2. REMICADE [Suspect]
     Indication: PSORIASIS
     Route: 042
     Dates: end: 2013
  3. DESMOPRESSIN [Concomitant]
     Indication: ENURESIS
     Dosage: FROM 8-9 YEARS
     Route: 048

REACTIONS (1)
  - Infection [Recovered/Resolved]
